FAERS Safety Report 14680045 (Version 1)
Quarter: 2018Q1

REPORT INFORMATION
  Report Type: Spontaneous
  Country: US (occurrence: US)
  Receive Date: 20180325
  Receipt Date: 20180325
  Transmission Date: 20180509
  Serious: Yes (Other)
  Sender: FDA-Public Use
  Company Number: None

PATIENT
  Age: 43 Year
  Sex: Female
  Weight: 76.5 kg

DRUGS (3)
  1. SERTRALINE [Concomitant]
     Active Substance: SERTRALINE HYDROCHLORIDE
  2. VITAMIN D [Concomitant]
     Active Substance: CHOLECALCIFEROL
  3. DICLOFENAC SODIUM. [Suspect]
     Active Substance: DICLOFENAC SODIUM
     Indication: TENDONITIS
     Dosage: ?          QUANTITY:1 TABLET(S);?
     Route: 048
     Dates: start: 20171130, end: 20171220

REACTIONS (9)
  - Seizure [None]
  - Pain in extremity [None]
  - Bruxism [None]
  - Blood lactic acid increased [None]
  - Pain [None]
  - Paralysis [None]
  - Speech disorder [None]
  - Musculoskeletal pain [None]
  - Joint range of motion decreased [None]

NARRATIVE: CASE EVENT DATE: 20171205
